APPROVED DRUG PRODUCT: FLONASE ALLERGY RELIEF
Active Ingredient: FLUTICASONE PROPIONATE
Strength: 0.05MG/SPRAY
Dosage Form/Route: SPRAY, METERED;NASAL
Application: N205434 | Product #001
Applicant: HALEON US HOLDINGS LLC
Approved: Jul 23, 2014 | RLD: Yes | RS: No | Type: OTC